FAERS Safety Report 9166548 (Version 1)
Quarter: 2013Q1

REPORT INFORMATION
  Report Type: Spontaneous
  Country: BR (occurrence: BR)
  Receive Date: 20130315
  Receipt Date: 20130315
  Transmission Date: 20140127
  Serious: Yes (Other)
  Sender: FDA-Public Use
  Company Number: BR-PFIZER INC-2013083453

PATIENT
  Age: 38 Year
  Sex: Female
  Weight: 81 kg

DRUGS (4)
  1. LYRICA [Suspect]
     Indication: FIBROMYALGIA
     Dosage: 75 MG, UNK
     Route: 048
     Dates: start: 201209
  2. LYRICA [Suspect]
     Indication: PAIN
     Dosage: 150 MG, 2X/DAY
     Route: 048
     Dates: start: 201303
  3. MIOSAN CAF [Concomitant]
     Indication: PAIN
     Dosage: UNK
     Dates: start: 201303
  4. RECONTER [Concomitant]
     Indication: PAIN
     Dosage: UNK
     Dates: start: 201209

REACTIONS (5)
  - Impaired driving ability [Unknown]
  - Activities of daily living impaired [Unknown]
  - Dizziness [Unknown]
  - Somnolence [Unknown]
  - Drug ineffective [Unknown]
